FAERS Safety Report 20083008 (Version 1)
Quarter: 2021Q4

REPORT INFORMATION
  Report Type: Spontaneous
  Country: NO (occurrence: NO)
  Receive Date: 20211117
  Receipt Date: 20211117
  Transmission Date: 20220303
  Serious: Yes (Other)
  Sender: FDA-Public Use
  Company Number: NO-TAKEDA-2021TUS071166

PATIENT
  Age: 35 Year
  Sex: Female

DRUGS (1)
  1. LISDEXAMFETAMINE DIMESYLATE [Suspect]
     Active Substance: LISDEXAMFETAMINE DIMESYLATE
     Indication: Attention deficit hyperactivity disorder
     Dosage: 30 MILLIGRAM, Q12H
     Route: 048
     Dates: start: 20210205

REACTIONS (4)
  - Reynold^s syndrome [Recovering/Resolving]
  - Scar [Not Recovered/Not Resolved]
  - Wound [Unknown]
  - Dermatillomania [Unknown]

NARRATIVE: CASE EVENT DATE: 20210201
